FAERS Safety Report 7913459-X (Version None)
Quarter: 2011Q4

REPORT INFORMATION
  Report Type: 
  Country: None (occurrence: None)
  Receive Date: 20111115
  Receipt Date: 20111031
  Transmission Date: 20120403
  Serious: Yes (Other)
  Sender: FDA-Public Use
  Company Number: BR-AMGEN-BRASP2010008652

PATIENT
  Age: 29 Year
  Sex: Female
  Weight: 89 kg

DRUGS (9)
  1. ENBREL [Suspect]
     Indication: RHEUMATOID ARTHRITIS
     Dosage: 50 MG, WEEKLY
     Route: 058
     Dates: start: 20100721
  2. PREDNISONE [Concomitant]
     Indication: PAIN
     Dosage: 5 MG, AS NEEDED
  3. DIPIRONA                           /06276701/ [Concomitant]
     Dosage: UNK
  4. CHLOROQUINE HYDROCHLORIDE [Concomitant]
     Indication: PRODUCT USED FOR UNKNOWN INDICATION
     Dosage: 250 MG, 1X/DAY
  5. METHOTREXATE [Concomitant]
     Indication: PRODUCT USED FOR UNKNOWN INDICATION
     Dosage: EVERY 15 DAYS
  6. IBUPROFEN [Concomitant]
     Indication: PAIN
     Dosage: 300 MG, AS NEEDED
  7. ENBREL [Suspect]
     Dosage: 25 MG, TWICE WEEKLY
     Dates: start: 20101118
  8. ACETAMINOPHEN [Concomitant]
     Dosage: STRENGTH 500 MG
  9. FOLIC ACID [Concomitant]
     Dosage: UNK

REACTIONS (1)
  - MENORRHAGIA [None]
